FAERS Safety Report 8330187-X (Version None)
Quarter: 2012Q2

REPORT INFORMATION
  Report Type: 
  Country: None (occurrence: None)
  Receive Date: 20120502
  Receipt Date: 20120501
  Transmission Date: 20120825
  Serious: Yes (Hospitalization)
  Sender: FDA-Public Use
  Company Number: IT-BAYER-2012-042469

PATIENT
  Age: 71 Year
  Sex: Male

DRUGS (5)
  1. ASPIRIN [Suspect]
     Indication: CORONARY ARTERY BYPASS
     Dosage: 100 MG, QD
     Route: 048
     Dates: start: 20070101, end: 20120424
  2. COUMADIN [Suspect]
     Indication: PULMONARY EMBOLISM
     Dosage: 5 MG, PRN
     Route: 048
     Dates: start: 20110101, end: 20120424
  3. RABEPRAZOLE SODIUM [Concomitant]
     Dosage: UNK
     Route: 048
  4. MEDROL [Concomitant]
     Indication: COLLAGEN DISORDER
     Dosage: UNK
     Route: 048
  5. METOPROLOL TARTRATE [Concomitant]

REACTIONS (2)
  - SUBARACHNOID HAEMORRHAGE [None]
  - HYPOCOAGULABLE STATE [None]
